FAERS Safety Report 6470259-8 (Version None)
Quarter: 2009Q4

REPORT INFORMATION
  Report Type: 
  Country: None (occurrence: None)
  Receive Date: 20091203
  Receipt Date: 20091123
  Transmission Date: 20100525
  Serious: Yes (Congenital Anomaly, Other)
  Sender: FDA-Public Use
  Company Number: GB-PFIZER INC-2009297768

PATIENT
  Sex: Female
  Weight: 1.44 kg

DRUGS (5)
  1. CYCLOPHOSPHAMIDE [Suspect]
     Indication: IMMUNOSUPPRESSANT DRUG THERAPY
     Dosage: 1 G, UNK
     Route: 064
  2. SOLU-MEDRONE [Suspect]
     Indication: IMMUNOSUPPRESSANT DRUG THERAPY
     Dosage: 1 G, 1X/DAY
     Route: 064
  3. DELTA-CORTEF [Suspect]
     Indication: IMMUNOSUPPRESSANT DRUG THERAPY
     Dosage: 60 MG, UNK
     Route: 064
  4. CO-TRIMOXAZOLE [Suspect]
     Route: 064
  5. BETAMETHASONE [Suspect]
     Route: 064

REACTIONS (4)
  - DRUG EXPOSURE DURING PREGNANCY [None]
  - FOETAL GROWTH RETARDATION [None]
  - PELVIC KIDNEY [None]
  - SOLITARY KIDNEY [None]
